FAERS Safety Report 14533888 (Version 1)
Quarter: 2018Q1

REPORT INFORMATION
  Report Type: Spontaneous
  Country: HU (occurrence: HU)
  Receive Date: 20180215
  Receipt Date: 20180215
  Transmission Date: 20180509
  Serious: Yes (Hospitalization, Other)
  Sender: FDA-Public Use
  Company Number: HU-MERCK KGAA-2042011

PATIENT
  Age: 69 Year
  Sex: Female

DRUGS (6)
  1. TREXAN [Suspect]
     Active Substance: METHOTREXATE SODIUM
     Route: 065
     Dates: start: 20150330
  2. CORBIS [Concomitant]
     Route: 065
  3. NOVOTHYROX [Suspect]
     Active Substance: LEVOTHYROXINE SODIUM
     Indication: HYPOTHYROIDISM
     Route: 065
  4. XANAX [Suspect]
     Active Substance: ALPRAZOLAM
     Route: 065
  5. SALAZOPYRIN [Suspect]
     Active Substance: SULFASALAZINE
     Route: 065
     Dates: start: 20150330
  6. ORENCIA [Suspect]
     Active Substance: ABATACEPT
     Route: 058
     Dates: start: 20151014, end: 20160603

REACTIONS (10)
  - Oral infection [Unknown]
  - Angina unstable [Unknown]
  - Aphthous ulcer [Unknown]
  - Headache [Recovered/Resolved]
  - Stress [Unknown]
  - Hypertension [Unknown]
  - Tooth disorder [Unknown]
  - Urinary tract infection [Unknown]
  - Loose tooth [Unknown]
  - Myocardial infarction [Unknown]

NARRATIVE: CASE EVENT DATE: 20160603
